FAERS Safety Report 5443541-0 (Version None)
Quarter: 2007Q3

REPORT INFORMATION
  Report Type: 
  Country: None (occurrence: None)
  Receive Date: 20070905
  Receipt Date: 20070817
  Transmission Date: 20080115
  Serious: Yes (Other)
  Sender: FDA-Public Use
  Company Number: MX-JNJFOC-20070900191

PATIENT
  Sex: Male

DRUGS (3)
  1. FLOXIL [Suspect]
     Indication: PHARYNGITIS
     Route: 048
  2. TYLEX 750 [Suspect]
     Route: 048
  3. TYLEX 750 [Suspect]
     Indication: PHARYNGITIS
     Route: 048

REACTIONS (5)
  - DYSPHONIA [None]
  - DYSPNOEA [None]
  - EYELID OEDEMA [None]
  - PRURIGO [None]
  - TACHYCARDIA [None]
